FAERS Safety Report 4585912-0 (Version None)
Quarter: 2005Q1

REPORT INFORMATION
  Report Type: 
  Country: None (occurrence: None)
  Receive Date: 20050214
  Receipt Date: 20050131
  Transmission Date: 20050727
  Serious: Yes (Life-Threatening)
  Sender: FDA-Public Use
  Company Number: TH-2005-001345

PATIENT
  Age: 74 Year
  Sex: Male

DRUGS (1)
  1. ULTRAVIST 300 [Suspect]
     Dosage: ML
     Dates: start: 20050101, end: 20050101

REACTIONS (3)
  - ANAPHYLACTIC SHOCK [None]
  - PRURITUS [None]
  - SWELLING FACE [None]
